FAERS Safety Report 20171149 (Version 1)
Quarter: 2021Q4

REPORT INFORMATION
  Report Type: Spontaneous
  Country: US (occurrence: None)
  Receive Date: 20211209
  Receipt Date: 20211209
  Transmission Date: 20220303
  Serious: No
  Sender: FDA-Public Use
  Company Number: None

PATIENT
  Age: 34 Year
  Sex: Female
  Weight: 68.95 kg

DRUGS (1)
  1. COPPER [Suspect]
     Active Substance: COPPER

REACTIONS (1)
  - Device breakage [None]

NARRATIVE: CASE EVENT DATE: 20211209
